FAERS Safety Report 5933548-9 (Version None)
Quarter: 2008Q4

REPORT INFORMATION
  Report Type: 
  Country: None (occurrence: None)
  Receive Date: 20081029
  Receipt Date: 20081015
  Transmission Date: 20090506
  Serious: Yes (Other)
  Sender: FDA-Public Use
  Company Number: JP-BAYER-200828619GPV

PATIENT

DRUGS (1)
  1. INTERFERON BETA [Suspect]
     Indication: NEUROMYELITIS OPTICA
     Route: 065

REACTIONS (4)
  - ADVERSE DRUG REACTION [None]
  - ANTIBODY TEST POSITIVE [None]
  - DRUG INEFFECTIVE [None]
  - NEUROMYELITIS OPTICA [None]
